FAERS Safety Report 6717868-6 (Version None)
Quarter: 2010Q2

REPORT INFORMATION
  Report Type: 
  Country: None (occurrence: None)
  Receive Date: 20100505
  Receipt Date: 20100427
  Transmission Date: 20101027
  Serious: Yes (Other)
  Sender: FDA-Public Use
  Company Number: 011009

PATIENT
  Age: 54 Year
  Sex: Male

DRUGS (13)
  1. KEPPRA [Suspect]
     Indication: CONVULSION
     Dosage: 1500 MG BID
  2. CIPROFLOXACIN [Concomitant]
  3. NORVASC [Concomitant]
  4. DOCUSATE [Concomitant]
  5. CLONIDINE [Concomitant]
  6. FENTANYL [Concomitant]
  7. PROSCAR [Concomitant]
  8. HYDRALAZINE HCL [Concomitant]
  9. INSULIN [Concomitant]
  10. METOPROLOL TARTRATE [Concomitant]
  11. SENNA LEAF [Concomitant]
  12. ZOLOFT [Concomitant]
  13. ZOCOR [Concomitant]

REACTIONS (1)
  - RENAL FAILURE ACUTE [None]
